FAERS Safety Report 9012443 (Version 1)
Quarter: 2013Q1

REPORT INFORMATION
  Report Type: Spontaneous
  Country: US (occurrence: US)
  Receive Date: 20130114
  Receipt Date: 20130114
  Transmission Date: 20140127
  Serious: No
  Sender: FDA-Public Use
  Company Number: US-TEVA-322405USA

PATIENT
  Sex: 0

DRUGS (1)
  1. DORZOLAMIDE [Suspect]
     Indication: INTRAOCULAR PRESSURE INCREASED
     Route: 047

REACTIONS (2)
  - Eye irritation [Unknown]
  - Drug ineffective [Unknown]
